FAERS Safety Report 11723058 (Version 1)
Quarter: 2015Q4

REPORT INFORMATION
  Report Type: Spontaneous
  Country: US (occurrence: None)
  Receive Date: 20151110
  Receipt Date: 20151110
  Transmission Date: 20160304
  Serious: Yes (Hospitalization)
  Sender: FDA-Public Use
  Company Number: None

PATIENT
  Age: 82 Year
  Sex: Female
  Weight: 77.11 kg

DRUGS (10)
  1. VITAMIN D3 [Concomitant]
     Active Substance: CHOLECALCIFEROL
  2. IBUPROFEN. [Concomitant]
     Active Substance: IBUPROFEN
  3. TRAMADOL (ULTRAM) [Concomitant]
  4. TRAMADOL. [Suspect]
     Active Substance: TRAMADOL
     Indication: ARTHRALGIA
     Dosage: 50MG?1 PILL?EVERY 6 HRS?BY MOUTH
     Route: 048
     Dates: start: 20151013, end: 20151016
  5. MULTIVITAMIN [Concomitant]
     Active Substance: VITAMINS
  6. CHOLESCALCIFEROL (VITAMIN D) [Concomitant]
  7. TIMOLOL (TIMOPTIC-XE) [Concomitant]
  8. PROPRANOLOL (INDERAL) [Concomitant]
  9. CELEBREX [Concomitant]
     Active Substance: CELECOXIB
  10. SIMVASTATIN (ZOCOR) [Concomitant]

REACTIONS (4)
  - Nausea [None]
  - Dyspnoea [None]
  - Mental impairment [None]
  - Speech disorder [None]

NARRATIVE: CASE EVENT DATE: 20151016
